FAERS Safety Report 25586701 (Version 1)
Quarter: 2025Q3

REPORT INFORMATION
  Report Type: Spontaneous
  Country: GB (occurrence: GB)
  Receive Date: 20250721
  Receipt Date: 20250721
  Transmission Date: 20251021
  Serious: Yes (Other)
  Sender: BIOVITRUM
  Company Number: GB-BIOVITRUM-2025-GB-010038

PATIENT
  Age: 62 Year
  Sex: Female

DRUGS (2)
  1. AVATROMBOPAG [Suspect]
     Active Substance: AVATROMBOPAG
     Indication: Immune thrombocytopenia
  2. AVATROMBOPAG [Suspect]
     Active Substance: AVATROMBOPAG

REACTIONS (4)
  - Cellulitis [Unknown]
  - Thrombocytosis [Unknown]
  - Platelet count decreased [Recovering/Resolving]
  - Thrombophlebitis [Unknown]
